FAERS Safety Report 8133864-9 (Version None)
Quarter: 2012Q1

REPORT INFORMATION
  Report Type: 
  Country: None (occurrence: None)
  Receive Date: 20120213
  Receipt Date: 20120203
  Transmission Date: 20120608
  Serious: Yes (Hospitalization)
  Sender: FDA-Public Use
  Company Number: US-MERCK-1107USA00016

PATIENT
  Age: 53 Year
  Sex: Female
  Weight: 48 kg

DRUGS (8)
  1. FOSAMAX [Suspect]
     Indication: OSTEOPENIA
     Route: 048
     Dates: start: 20010109, end: 20080101
  2. FOSAMAX PLUS D [Suspect]
     Indication: OSTEOPENIA
     Route: 048
     Dates: start: 20010101, end: 20080901
  3. CALCIUM (UNSPECIFIED) [Concomitant]
     Route: 065
     Dates: end: 20080929
  4. GLYQUIN (GLYCOLIC ACID (+) HYDROQUINONE (+) OCTINOXATE (+) OXYBENZONE [Concomitant]
     Indication: CHLOASMA
     Route: 065
     Dates: start: 20020401
  5. BONIVA [Concomitant]
     Indication: OSTEOPENIA
     Route: 048
     Dates: start: 20080901, end: 20100301
  6. HORMONES (UNSPECIFIED) [Concomitant]
     Route: 065
     Dates: start: 19980101
  7. RENOVA [Concomitant]
     Indication: LENTIGO
     Route: 065
  8. FOSAMAX [Suspect]
     Indication: OSTEOPOROSIS
     Route: 048
     Dates: start: 20010109, end: 20080101

REACTIONS (30)
  - OSTEOARTHRITIS [None]
  - HYPERTENSION [None]
  - HAEMOGLOBIN DECREASED [None]
  - DIVERTICULUM INTESTINAL [None]
  - HAEMORRHOIDS [None]
  - IMPAIRED HEALING [None]
  - NEPHROLITHIASIS [None]
  - MUSCULOSKELETAL PAIN [None]
  - FEMUR FRACTURE [None]
  - UTERINE LEIOMYOMA [None]
  - DEVICE INEFFECTIVE [None]
  - DYSPAREUNIA [None]
  - PAIN [None]
  - UPPER RESPIRATORY TRACT INFECTION [None]
  - SUPRAVENTRICULAR EXTRASYSTOLES [None]
  - DRUG INEFFECTIVE [None]
  - ELECTROCARDIOGRAM CHANGE [None]
  - ANAEMIA POSTOPERATIVE [None]
  - PROCEDURAL HYPOTENSION [None]
  - BREAST CALCIFICATIONS [None]
  - PERIARTHRITIS [None]
  - MUSCLE HAEMORRHAGE [None]
  - ARTHRALGIA [None]
  - HYPERTONIC BLADDER [None]
  - ARTHROPATHY [None]
  - INSOMNIA [None]
  - FRACTURE NONUNION [None]
  - MELANOCYTIC NAEVUS [None]
  - MOBILITY DECREASED [None]
  - BURSITIS [None]
